FAERS Safety Report 8093411-7 (Version None)
Quarter: 2012Q1

REPORT INFORMATION
  Report Type: 
  Country: None (occurrence: None)
  Receive Date: 20120131
  Receipt Date: 20120119
  Transmission Date: 20120608
  Serious: Yes (Hospitalization, Other)
  Sender: FDA-Public Use
  Company Number: NO-PFIZER INC-2012023160

PATIENT
  Age: 79 Year
  Sex: Male

DRUGS (2)
  1. RAMIPRIL [Suspect]
     Indication: HYPERTENSION
     Dosage: 10 MG, DAILY
     Route: 048
  2. RAMIPRIL [Suspect]
     Indication: HYPERTENSION
     Dosage: 10 MG, DAILY
     Route: 048

REACTIONS (4)
  - MEDICATION ERROR [None]
  - SYNCOPE [None]
  - BLOOD PRESSURE ORTHOSTATIC [None]
  - RENAL FAILURE [None]
